FAERS Safety Report 7248872-X (Version None)
Quarter: 2011Q1

REPORT INFORMATION
  Report Type: 
  Country: None (occurrence: None)
  Receive Date: 20110128
  Receipt Date: 20100618
  Transmission Date: 20110831
  Serious: Yes (Life-Threatening, Hospitalization)
  Sender: FDA-Public Use
  Company Number: US-BAYER-200928615NA

PATIENT
  Sex: Female
  Weight: 74.83 kg

DRUGS (6)
  1. PAXIL [Concomitant]
     Dosage: 25 MG, QD
  2. YAZ [Suspect]
     Indication: PREMENSTRUAL SYNDROME
     Dosage: UNK
     Dates: start: 20080224, end: 20080302
  3. PROZAC [Concomitant]
     Indication: ANXIETY
  4. PEPCID [Concomitant]
     Dosage: UNK
     Dates: start: 20080302
  5. MOTRIN [Concomitant]
     Dosage: UNK
     Dates: start: 20080302
  6. PROZAC [Concomitant]
     Indication: PREMENSTRUAL SYNDROME
     Dosage: 20 MG, QD
     Dates: start: 20040101

REACTIONS (10)
  - PULMONARY HYPERTENSION [None]
  - TRICUSPID VALVE INCOMPETENCE [None]
  - VOMITING [None]
  - CHEST PAIN [None]
  - NAUSEA [None]
  - RIGHT VENTRICULAR HYPERTROPHY [None]
  - WEIGHT INCREASED [None]
  - ANXIETY [None]
  - PULMONARY EMBOLISM [None]
  - DYSPNOEA [None]
